FAERS Safety Report 6915965-3 (Version None)
Quarter: 2010Q3

REPORT INFORMATION
  Report Type: 
  Country: None (occurrence: None)
  Receive Date: 20100809
  Receipt Date: 20100809
  Transmission Date: 20110219
  Serious: Yes (Hospitalization)
  Sender: FDA-Public Use
  Company Number: None

PATIENT
  Age: 72 Year
  Sex: Female
  Weight: 70 kg

DRUGS (6)
  1. LISINOPRIL [Suspect]
     Indication: HYPERTENSION
     Dosage: 40 MG DAILY PO ; PRIOR TO ADMISSION
     Route: 048
  2. CILOSTAZOL [Concomitant]
  3. DILTIAZEM [Concomitant]
  4. INSULIN ASPART [Concomitant]
  5. INSULIN GLARGINE [Concomitant]
  6. LABETALOL HCL [Concomitant]

REACTIONS (2)
  - ANGIOEDEMA [None]
  - DYSPNOEA [None]
